FAERS Safety Report 4518415-X (Version None)
Quarter: 2004Q4

REPORT INFORMATION
  Report Type: 
  Country: None (occurrence: None)
  Receive Date: 20041202
  Receipt Date: 20041119
  Transmission Date: 20050328
  Serious: Yes (Hospitalization)
  Sender: FDA-Public Use
  Company Number: HQWYE623522NOV04

PATIENT
  Age: 61 Year
  Sex: Male

DRUGS (4)
  1. RAPAMUNE [Suspect]
     Indication: PROPHYLAXIS AGAINST TRANSPLANT REJECTION
     Dosage: 2 MG1X PER 1 DAY
     Route: 048
     Dates: start: 20040920
  2. CELLCEPT      (MYCOPHENOLAET URSODEOXYCHOLIC ACID) [Concomitant]
  3. URSODEOXYCHOLIC ACID            (URSODEOXYCHOLIC ACID) [Concomitant]
  4. METOPROLOL SUCCINATE [Concomitant]

REACTIONS (2)
  - HEPATITIS C VIRUS [None]
  - LIVER TRANSPLANT REJECTION [None]
